FAERS Safety Report 15412363 (Version 2)
Quarter: 2018Q4

REPORT INFORMATION
  Report Type: Report from Study
  Country: TW (occurrence: TW)
  Receive Date: 20180921
  Receipt Date: 20181008
  Transmission Date: 20190204
  Serious: Yes (Other)
  Sender: FDA-Public Use
  Company Number: TW-MYLANLABS-2018M1068449

PATIENT
  Age: 29 Year
  Sex: Female

DRUGS (1)
  1. METHOTREXATE. [Suspect]
     Active Substance: METHOTREXATE
     Indication: ECTOPIC PREGNANCY
     Dosage: 1 MG/KG, SYSTEMIC INJECTION ON DAYS 1, 3, 5, AND 7
     Route: 030

REACTIONS (1)
  - Vaginal haemorrhage [Unknown]
